FAERS Safety Report 12305623 (Version 3)
Quarter: 2016Q2

REPORT INFORMATION
  Report Type: Spontaneous
  Country: US (occurrence: US)
  Receive Date: 20160426
  Receipt Date: 20160608
  Transmission Date: 20160815
  Serious: Yes (Other)
  Sender: FDA-Public Use
  Company Number: US-ENDO PHARMACEUTICALS INC.-2016-002767

PATIENT
  Age: 9 Year
  Sex: Female
  Weight: 41 kg

DRUGS (8)
  1. SUPPRELIN LA [Suspect]
     Active Substance: HISTRELIN ACETATE
     Route: 058
     Dates: start: 20140212, end: 201504
  2. SUPPRELIN LA [Suspect]
     Active Substance: HISTRELIN ACETATE
     Route: 058
     Dates: start: 201205, end: 20120727
  3. SUPPRELIN LA [Suspect]
     Active Substance: HISTRELIN ACETATE
     Route: 058
     Dates: start: 201212, end: 20140212
  4. SUPPRELIN LA [Suspect]
     Active Substance: HISTRELIN ACETATE
     Route: 058
     Dates: start: 20120727, end: 201208
  5. HYOSYNE [Concomitant]
     Active Substance: HYOSCYAMINE SULFATE
     Indication: ABDOMINAL PAIN UPPER
     Route: 048
  6. SUPPRELIN LA [Suspect]
     Active Substance: HISTRELIN ACETATE
     Route: 058
     Dates: start: 201504, end: 20160407
  7. SUPPRELIN LA [Suspect]
     Active Substance: HISTRELIN ACETATE
     Indication: PRECOCIOUS PUBERTY
     Route: 058
     Dates: start: 20160407
  8. ONDANSETRON [Concomitant]
     Active Substance: ONDANSETRON
     Indication: NAUSEA
     Route: 048

REACTIONS (5)
  - Rash pruritic [Recovered/Resolved]
  - Implant site discharge [Not Recovered/Not Resolved]
  - Pain in extremity [Not Recovered/Not Resolved]
  - Peripheral swelling [Not Recovered/Not Resolved]
  - Urticaria [Recovered/Resolved]

NARRATIVE: CASE EVENT DATE: 2012
